FAERS Safety Report 13399484 (Version 1)
Quarter: 2017Q2

REPORT INFORMATION
  Report Type: Report from Study
  Country: JP (occurrence: JP)
  Receive Date: 20170404
  Receipt Date: 20170404
  Transmission Date: 20170830
  Serious: Yes (Life-Threatening, Hospitalization)
  Sender: FDA-Public Use
  Company Number: JP-CONCORDIA PHARMACEUTICALS INC.-MAPI_00012220

PATIENT
  Age: 73 Year
  Sex: Male

DRUGS (10)
  1. STALEVO [Concomitant]
     Active Substance: CARBIDOPA\ENTACAPONE\LEVODOPA
  2. SENNOSIDE [Concomitant]
     Active Substance: SENNOSIDES
  3. DEPAS [Concomitant]
     Active Substance: ETIZOLAM
  4. AMOBAN [Concomitant]
     Active Substance: ZOPICLONE
  5. ZONISAMIDE CAPSULE [Suspect]
     Active Substance: ZONISAMIDE
     Indication: PARKINSON^S DISEASE
     Route: 048
     Dates: end: 20150928
  6. MADOPAR [Concomitant]
     Active Substance: BENSERAZIDE HYDROCHLORIDE\LEVODOPA
  7. SYMMETREL [Concomitant]
     Active Substance: AMANTADINE HYDROCHLORIDE
  8. ZONISAMIDE CAPSULE [Suspect]
     Active Substance: ZONISAMIDE
     Route: 048
     Dates: start: 20150929, end: 20160720
  9. FP [Concomitant]
     Active Substance: SELEGILINE HYDROCHLORIDE
  10. LOXONIN [Concomitant]
     Active Substance: LOXOPROFEN SODIUM

REACTIONS (1)
  - Infectious pleural effusion [Recovered/Resolved]

NARRATIVE: CASE EVENT DATE: 20160713
